FAERS Safety Report 12584984 (Version 1)
Quarter: 2016Q3

REPORT INFORMATION
  Report Type: Spontaneous
  Country: US (occurrence: US)
  Receive Date: 20160722
  Receipt Date: 20160722
  Transmission Date: 20161109
  Serious: Yes (Other)
  Sender: FDA-Public Use
  Company Number: US-AMGEN-USASP2016092675

PATIENT
  Age: 84 Year
  Sex: Female

DRUGS (2)
  1. PROLIA [Suspect]
     Active Substance: DENOSUMAB
     Indication: OSTEOPOROSIS POSTMENOPAUSAL
     Dosage: UNK
     Route: 065
  2. SIMVASTATIN. [Concomitant]
     Active Substance: SIMVASTATIN
     Indication: DRY AGE-RELATED MACULAR DEGENERATION

REACTIONS (6)
  - Lower limb fracture [Unknown]
  - Pelvic fracture [Unknown]
  - Pain [Recovered/Resolved]
  - Drug ineffective [Unknown]
  - Blood parathyroid hormone increased [Unknown]
  - Dizziness [Unknown]

NARRATIVE: CASE EVENT DATE: 2015
